FAERS Safety Report 12082802 (Version 1)
Quarter: 2016Q1

REPORT INFORMATION
  Report Type: Spontaneous
  Country: US (occurrence: None)
  Receive Date: 20160216
  Receipt Date: 20160216
  Transmission Date: 20160526
  Serious: No
  Sender: FDA-Public Use
  Company Number: None

PATIENT
  Age: 55 Year
  Sex: Female
  Weight: 65.77 kg

DRUGS (13)
  1. CETIRIZINE HYROCHLORODE [Concomitant]
  2. PROAIR HFA [Concomitant]
     Active Substance: ALBUTEROL SULFATE
  3. SYMBACORT [Concomitant]
  4. PANTOPRAZOLE [Concomitant]
     Active Substance: PANTOPRAZOLE SODIUM
  5. CALCIUM/MAGNESIUM [Concomitant]
  6. PRVASTATIN SODIUM [Concomitant]
  7. SPIRIVA [Concomitant]
     Active Substance: TIOTROPIUM BROMIDE MONOHYDRATE
  8. GLUCOSAMINE CHONDROITIN MSM [Concomitant]
  9. IC ESZOPICLONE LU Y23 3MG LUPIN PHARMACEU, INDIA [Suspect]
     Active Substance: ESZOPICLONE
     Indication: INSOMNIA
     Dosage: 1 PILL BEFORE BEDTIME
     Route: 048
     Dates: start: 20160212
  10. MONTELUKAST [Concomitant]
     Active Substance: MONTELUKAST SODIUM
  11. RANITIDINE [Concomitant]
     Active Substance: RANITIDINE\RANITIDINE HYDROCHLORIDE
  12. VITAMIN B COMPLEX [Concomitant]
     Active Substance: CYANOCOBALAMIN\DEXPANTHENOL\NIACINAMIDE\PYRIDOXINE HYDROCHLORIDE\RIBOFLAVIN 5^-PHOSPHATE SODIUM\THIAMINE HYDROCHLORIDE\VITAMIN B COMPLEX
  13. VITAMIN D [Concomitant]
     Active Substance: CHOLECALCIFEROL

REACTIONS (4)
  - Initial insomnia [None]
  - Feeling jittery [None]
  - Tachyphrenia [None]
  - Product quality issue [None]

NARRATIVE: CASE EVENT DATE: 20160212
